FAERS Safety Report 8784655 (Version 3)
Quarter: 2012Q4

REPORT INFORMATION
  Report Type: Spontaneous
  Country: US (occurrence: None)
  Receive Date: 20120831
  Receipt Date: 20121010
  Transmission Date: 20130627
  Serious: Yes (Hospitalization)
  Sender: FDA-Public Use
  Company Number: ACO_31654_2012

PATIENT
  Age: 69 Year
  Sex: Female

DRUGS (8)
  1. AMPYRA [Suspect]
     Route: 048
     Dates: start: 201207, end: 201207
  2. AMPYRA [Suspect]
     Route: 048
     Dates: start: 201208, end: 201208
  3. COPAXONE [Suspect]
     Indication: MULTIPLE SCLEROSIS
     Route: 058
     Dates: start: 20091111
  4. SIMVASTATIN (SIMVASTATIN) [Concomitant]
  5. ULTRAM (TRAMADOL HYDROCHLORIDE) [Concomitant]
  6. ACIPHEX (RABEPRAZOLE SODIUM) [Concomitant]
  7. PAROXETINE (PAROXETINE) [Concomitant]
  8. ALPRAZOLAM (ALPRAZOLAM) [Concomitant]

REACTIONS (3)
  - Cellulitis [None]
  - Oedema peripheral [None]
  - Urinary tract infection [None]
